FAERS Safety Report 23774151 (Version 2)
Quarter: 2024Q2

REPORT INFORMATION
  Report Type: Report from Study
  Country: GR (occurrence: GR)
  Receive Date: 20240423
  Receipt Date: 20240618
  Transmission Date: 20240716
  Serious: Yes (Death, Hospitalization, Other)
  Sender: FDA-Public Use
  Company Number: GR-ABBVIE-5729749

PATIENT
  Age: 76 Year
  Sex: Female

DRUGS (2)
  1. CARBIDOPA\LEVODOPA [Suspect]
     Active Substance: CARBIDOPA\LEVODOPA
     Indication: Parkinson^s disease
     Dosage: MORNING DOSE: 11.0ML; CONTINUOUS RATE: 1.9ML/H; EXTRA DOSE: 1.7ML
     Route: 050
     Dates: start: 20140317
  2. CARBIDOPA\LEVODOPA [Suspect]
     Active Substance: CARBIDOPA\LEVODOPA

REACTIONS (2)
  - Sepsis [Fatal]
  - Urinary tract infection [Unknown]
